FAERS Safety Report 16013093 (Version 2)
Quarter: 2019Q2

REPORT INFORMATION
  Report Type: Report from Study
  Country: BR (occurrence: BR)
  Receive Date: 20190227
  Receipt Date: 20190415
  Transmission Date: 20190711
  Serious: Yes (Other)
  Sender: FDA-Public Use
  Company Number: BR-ASTRAZENECA-2018SF54827

PATIENT
  Age: 17808 Day
  Sex: Female

DRUGS (2)
  1. CORTICOSTEROID NOS [Concomitant]
     Active Substance: CORTICOSTEROID NOS
  2. FASENRA [Suspect]
     Active Substance: BENRALIZUMAB
     Indication: ASTHMA
     Dosage: 30 MG/ML EVERY 4 WEEKS IN THE FIRST 3 DOSES AND THEN EVERY 8 WEEKS.
     Route: 058
     Dates: start: 20181023

REACTIONS (7)
  - Dyspnoea [Recovered/Resolved]
  - Bronchospasm [Recovered/Resolved]
  - Lung disorder [Unknown]
  - Drug ineffective [Unknown]
  - Spinal disorder [Unknown]
  - Somnolence [Not Recovered/Not Resolved]
  - Pain [Recovering/Resolving]

NARRATIVE: CASE EVENT DATE: 20181121
